FAERS Safety Report 6781343-3 (Version None)
Quarter: 2010Q2

REPORT INFORMATION
  Report Type: 
  Country: None (occurrence: None)
  Receive Date: 20100621
  Receipt Date: 20100616
  Transmission Date: 20101027
  Serious: Yes (Death, Hospitalization, Other)
  Sender: FDA-Public Use
  Company Number: PHHY2009BR33335

PATIENT
  Sex: Male

DRUGS (3)
  1. EXELON [Suspect]
     Indication: NEURODEGENERATIVE DISORDER
     Dosage: 9 MG/ 5 CM2
     Route: 062
  2. EXELON [Suspect]
     Indication: DEMENTIA ALZHEIMER'S TYPE
     Dosage: 27MG/15 CM2
     Route: 062
  3. HIDANTAL [Concomitant]
     Indication: CONVULSION
     Dosage: 100 MG, TID

REACTIONS (15)
  - AGGRESSION [None]
  - AGITATION [None]
  - BLOOD URINE PRESENT [None]
  - CONVULSION [None]
  - EATING DISORDER [None]
  - EMPHYSEMA [None]
  - LUNG NEOPLASM [None]
  - OESOPHAGEAL CANDIDIASIS [None]
  - PNEUMONIA [None]
  - PULMONARY SEPSIS [None]
  - SYNCOPE [None]
  - TREATMENT NONCOMPLIANCE [None]
  - URINARY TRACT INFECTION [None]
  - VOMITING [None]
  - WEIGHT DECREASED [None]
